FAERS Safety Report 9694791 (Version 1)
Quarter: 2013Q4

REPORT INFORMATION
  Report Type: Report from Study
  Country: US (occurrence: US)
  Receive Date: 20131119
  Receipt Date: 20131119
  Transmission Date: 20140711
  Serious: Yes (Other)
  Sender: FDA-Public Use
  Company Number: US-ROCHE-1300614

PATIENT
  Sex: Female

DRUGS (7)
  1. CELLCEPT [Suspect]
     Indication: IMMUNOSUPPRESSION
     Route: 048
  2. CEFTRIAXONE [Suspect]
     Indication: PRODUCT USED FOR UNKNOWN INDICATION
     Route: 065
  3. ALBUTEROL [Concomitant]
     Route: 048
  4. CALCITRIOL [Concomitant]
     Route: 048
  5. FLOVENT [Concomitant]
     Route: 048
  6. KEPPRA [Concomitant]
     Route: 048
  7. CALCITRIOL [Concomitant]
     Route: 065

REACTIONS (3)
  - Urticaria [Unknown]
  - Dyspnoea [Unknown]
  - Hypotension [Unknown]
